FAERS Safety Report 7757371-8 (Version None)
Quarter: 2011Q3

REPORT INFORMATION
  Report Type: 
  Country: None (occurrence: None)
  Receive Date: 20110916
  Receipt Date: 20110914
  Transmission Date: 20111222
  Serious: No
  Sender: FDA-Public Use
  Company Number: US-BAYER-2011-068940

PATIENT
  Age: 39 Year
  Sex: Female
  Weight: 90.703 kg

DRUGS (1)
  1. EOVIST [Suspect]
     Indication: NUCLEAR MAGNETIC RESONANCE IMAGING
     Dosage: 10 ML, ONCE
     Route: 042
     Dates: start: 20110802, end: 20110802

REACTIONS (2)
  - URTICARIA [None]
  - PRURITUS [None]
